FAERS Safety Report 9285710 (Version 3)
Quarter: 2013Q2

REPORT INFORMATION
  Report Type: Report from Study
  Country: CA (occurrence: CA)
  Receive Date: 20130513
  Receipt Date: 20130607
  Transmission Date: 20140414
  Serious: Yes (Other)
  Sender: FDA-Public Use
  Company Number: CA-JNJFOC-20130505321

PATIENT
  Age: 62 Year
  Sex: Male
  Weight: 85 kg

DRUGS (2)
  1. REMICADE [Suspect]
     Indication: CROHN^S DISEASE
     Route: 042
     Dates: start: 20130510
  2. REMICADE [Suspect]
     Indication: CROHN^S DISEASE
     Route: 042

REACTIONS (5)
  - Road traffic accident [Unknown]
  - Foot fracture [Unknown]
  - Contusion [Unknown]
  - Gallbladder perforation [Unknown]
  - Cholelithiasis [Unknown]
